FAERS Safety Report 4963433-0 (Version None)
Quarter: 2006Q1

REPORT INFORMATION
  Report Type: 
  Country: None (occurrence: None)
  Receive Date: 20060330
  Receipt Date: 20060320
  Transmission Date: 20060701
  Serious: Yes (Death)
  Sender: FDA-Public Use
  Company Number: USA-2006-0023815

PATIENT
  Age: 32 Year
  Sex: Female

DRUGS (2)
  1. OXYCONTIN [Suspect]
     Indication: PAIN
     Dosage: 160 MG, Q8H
     Dates: end: 20060312
  2. OXYFAST CONCENTRATE [Suspect]
     Dosage: 1 ML, SEE TEXT

REACTIONS (1)
  - DIABETIC VASCULAR DISORDER [None]
